FAERS Safety Report 9479192 (Version 1)
Quarter: 2013Q3

REPORT INFORMATION
  Report Type: Spontaneous
  Country: IT (occurrence: IT)
  Receive Date: 20130827
  Receipt Date: 20130827
  Transmission Date: 20140515
  Serious: Yes (Hospitalization)
  Sender: FDA-Public Use
  Company Number: IT-TEVA-428399ISR

PATIENT
  Age: 61 Year
  Sex: Male
  Weight: 90 kg

DRUGS (4)
  1. CARBOLITHIUM 300 MG [Suspect]
     Indication: AFFECTIVE DISORDER
     Dosage: 2 DOSAGE FORMS DAILY;
     Route: 048
     Dates: start: 20130101, end: 20130403
  2. CLOTIAPINA [Concomitant]
  3. SERTRALINA CLORIDRATO [Concomitant]
     Dosage: 75 MILLIGRAM DAILY;
     Route: 048
     Dates: start: 20130101, end: 20130403
  4. VALDORM 15 MG [Concomitant]

REACTIONS (6)
  - Rhabdomyolysis [Recovering/Resolving]
  - Syncope [Recovered/Resolved]
  - Tremor [Recovered/Resolved]
  - Somnolence [Recovered/Resolved]
  - Antipsychotic drug level increased [Recovering/Resolving]
  - Blood creatine phosphokinase increased [Recovering/Resolving]
